FAERS Safety Report 5668246-2 (Version None)
Quarter: 2008Q1

REPORT INFORMATION
  Report Type: 
  Country: None (occurrence: None)
  Receive Date: 20080315
  Receipt Date: 20080219
  Transmission Date: 20080703
  Serious: No
  Sender: FDA-Public Use
  Company Number: US-ABBOTT-08P-163-0439083-00

PATIENT

DRUGS (3)
  1. HUMIRA [Suspect]
     Indication: PSORIASIS
     Route: 058
     Dates: start: 20071001
  2. PAROXETINE HCL [Concomitant]
     Indication: DEPRESSION
     Route: 048
  3. EFALIZUMAB [Concomitant]
     Indication: PSORIASIS
     Dosage: WEANED OFF OVER 12 WEEKS
     Route: 048
     Dates: end: 20080105

REACTIONS (3)
  - PRURITUS [None]
  - PSORIASIS [None]
  - RASH [None]
